FAERS Safety Report 9680144 (Version 3)
Quarter: 2014Q1

REPORT INFORMATION
  Report Type: Spontaneous
  Country: US (occurrence: US)
  Receive Date: 20131111
  Receipt Date: 20140218
  Transmission Date: 20141002
  Serious: Yes (Hospitalization)
  Sender: FDA-Public Use
  Company Number: US-BIOGENIDEC-2013BI106555

PATIENT
  Age: 58 Year
  Sex: Female

DRUGS (17)
  1. AVONEX [Suspect]
     Indication: MULTIPLE SCLEROSIS
     Route: 030
  2. AVONEX [Suspect]
     Indication: MULTIPLE SCLEROSIS
     Route: 030
     Dates: start: 20090721
  3. AVONEX [Suspect]
     Indication: MULTIPLE SCLEROSIS
     Route: 030
     Dates: start: 20110329
  4. AVONEX [Suspect]
     Indication: MULTIPLE SCLEROSIS
     Route: 030
  5. AVAPRO [Concomitant]
  6. CLONAZEPAM [Concomitant]
  7. LASIX (HYDROCHLOROTHIAZIDE) [Concomitant]
  8. LEVOTHYROID [Concomitant]
  9. METOPROLOL TARTRATE [Concomitant]
  10. MIRTAZAPINE [Concomitant]
  11. NEXIUM [Concomitant]
  12. ONDANSETRON [Concomitant]
  13. OXYCODONE HCL [Concomitant]
  14. SERTRALINE HCL [Concomitant]
  15. SIMVASTIN [Concomitant]
  16. TEMPZEPAM [Concomitant]
  17. ZOLPIDEM TARTRATE [Concomitant]

REACTIONS (10)
  - Rotator cuff syndrome [Unknown]
  - Post procedural haemorrhage [Recovered/Resolved]
  - Gait disturbance [Not Recovered/Not Resolved]
  - Hypoaesthesia [Not Recovered/Not Resolved]
  - Injection site haemorrhage [Recovered/Resolved]
  - Fall [Recovered/Resolved]
  - Local swelling [Recovered/Resolved]
  - Concussion [Unknown]
  - Anaemia [Not Recovered/Not Resolved]
  - Dyspnoea [Recovered/Resolved]
